FAERS Safety Report 21762719 (Version 2)
Quarter: 2023Q1

REPORT INFORMATION
  Report Type: Spontaneous
  Country: GB (occurrence: GB)
  Receive Date: 20221221
  Receipt Date: 20230106
  Transmission Date: 20230418
  Serious: Yes (Life-Threatening, Hospitalization, Other)
  Sender: FDA-Public Use
  Company Number: GB-BRISTOL-MYERS SQUIBB COMPANY-BMS-2021-036607

PATIENT
  Age: 41 Year
  Sex: Female

DRUGS (5)
  1. NIVOLUMAB [Suspect]
     Active Substance: NIVOLUMAB
     Indication: Colorectal cancer
     Dosage: DOSE : 480MG;     FREQ : ^4 WEEKLY^
     Dates: start: 20210223, end: 20210223
  2. NIVOLUMAB [Suspect]
     Active Substance: NIVOLUMAB
     Dosage: UNK UNK, Q4WK
  3. HYDROCORTISONE [Suspect]
     Active Substance: HYDROCORTISONE
     Indication: Product used for unknown indication
     Dosage: 100 MILLIGRAM
  4. ACETAMINOPHEN [Concomitant]
     Active Substance: ACETAMINOPHEN
     Indication: Product used for unknown indication
  5. ANTIHISTAMINES NOS [Concomitant]
     Active Substance: ANTIHISTAMINES NOS
     Indication: Product used for unknown indication

REACTIONS (11)
  - Chest pain [Unknown]
  - Back pain [Unknown]
  - Chest discomfort [Unknown]
  - Off label use [Unknown]
  - Dyspnoea [Recovered/Resolved]
  - Intestinal obstruction [Unknown]
  - Wound dehiscence [Unknown]
  - Impaired healing [Unknown]
  - Septic shock [Unknown]
  - Necrotising fasciitis [Unknown]
  - Stoma site cellulitis [Unknown]

NARRATIVE: CASE EVENT DATE: 20210223
